FAERS Safety Report 14870352 (Version 4)
Quarter: 2023Q4

REPORT INFORMATION
  Report Type: Report from Study
  Country: FR (occurrence: FR)
  Receive Date: 20180509
  Receipt Date: 20231130
  Transmission Date: 20240110
  Serious: Yes (Hospitalization)
  Sender: FDA-Public Use
  Company Number: FR-BEAUFOUR-IPSEN PHARMA-2017-06886

PATIENT
  Age: 3 Year
  Sex: Male
  Weight: 13.8 kg

DRUGS (8)
  1. INCRELEX [Suspect]
     Active Substance: MECASERMIN
     Indication: Primary insulin like growth factor-1 deficiency
     Route: 065
     Dates: start: 20151118, end: 20160607
  2. INCRELEX [Suspect]
     Active Substance: MECASERMIN
     Route: 065
     Dates: start: 20150415, end: 20151117
  3. INCRELEX [Suspect]
     Active Substance: MECASERMIN
     Route: 065
     Dates: start: 20140620, end: 20140628
  4. INCRELEX [Suspect]
     Active Substance: MECASERMIN
     Route: 065
     Dates: start: 20140629, end: 20140707
  5. INCRELEX [Suspect]
     Active Substance: MECASERMIN
     Route: 065
     Dates: start: 20140708, end: 20150414
  6. INCRELEX [Suspect]
     Active Substance: MECASERMIN
     Dosage: BID
     Route: 065
     Dates: start: 20160620
  7. INCRELEX [Suspect]
     Active Substance: MECASERMIN
     Dosage: BID
     Route: 065
     Dates: start: 20140629
  8. INCRELEX [Suspect]
     Active Substance: MECASERMIN
     Dosage: BID
     Route: 065
     Dates: start: 20140708

REACTIONS (4)
  - Sleep apnoea syndrome [Recovered/Resolved]
  - Adenotonsillectomy [Recovered/Resolved]
  - Overdose [Unknown]
  - Off label use [Unknown]

NARRATIVE: CASE EVENT DATE: 20160122
